FAERS Safety Report 9360218 (Version 1)
Quarter: 2013Q2

REPORT INFORMATION
  Report Type: Spontaneous
  Country: FR (occurrence: FR)
  Receive Date: 20130621
  Receipt Date: 20130621
  Transmission Date: 20140414
  Serious: Yes (Death, Hospitalization)
  Sender: FDA-Public Use
  Company Number: FR-ASTRAZENECA-2013SE47170

PATIENT
  Age: 86 Year
  Sex: Female

DRUGS (10)
  1. INEXIUM [Suspect]
     Route: 048
  2. CRESTOR [Suspect]
     Route: 048
  3. DIFFU K [Suspect]
  4. FUROSEMIDE TEVA [Suspect]
     Indication: CARDIAC FAILURE
     Route: 048
     Dates: start: 201210
  5. FUROSEMIDE TEVA [Suspect]
     Indication: CARDIAC FAILURE
     Dosage: INCREASED 2X PER ? TABLETS, 1ST INCREASE AROUND 10 DAYS BEFORE DEATH,2ND DURING WEEKEND BEFORE DEAT
     Route: 048
     Dates: start: 201306
  6. FUROSEMIDE TEVA [Suspect]
     Indication: CARDIAC FAILURE
     Dosage: INCREASED FROM 80 MG TO 100 MG PER DAY
     Route: 048
     Dates: start: 201306
  7. FUROSEMIDE TEVA [Suspect]
     Indication: CARDIAC FAILURE
     Dosage: 60 MG IN THE MORNING, 40 MG AT MIDDAY
     Route: 048
     Dates: start: 20130609
  8. ZYLORIC [Suspect]
  9. CARDENSIEL [Suspect]
  10. PREVISCAN [Suspect]

REACTIONS (5)
  - Sudden death [Fatal]
  - Renal failure acute [Unknown]
  - Fall [Unknown]
  - Rhabdomyolysis [Unknown]
  - Fatigue [Unknown]
